FAERS Safety Report 5252918-8 (Version None)
Quarter: 2007Q1

REPORT INFORMATION
  Report Type: 
  Country: None (occurrence: None)
  Receive Date: 20070301
  Receipt Date: 20070227
  Transmission Date: 20070707
  Serious: Yes (Hospitalization)
  Sender: FDA-Public Use
  Company Number: US-AVENTIS-200711169US

PATIENT
  Sex: Female

DRUGS (2)
  1. LANTUS [Suspect]
     Dosage: DOSE: UNK
  2. OPTICLIK (INSULIN INJECTION PEN) [Suspect]

REACTIONS (3)
  - LUNG DISORDER [None]
  - PNEUMONIA [None]
  - PYREXIA [None]
